FAERS Safety Report 16513308 (Version 1)
Quarter: 2019Q3

REPORT INFORMATION
  Report Type: Report from Study
  Country: GB (occurrence: GB)
  Receive Date: 20190702
  Receipt Date: 20190702
  Transmission Date: 20191004
  Serious: Yes (Other)
  Sender: FDA-Public Use
  Company Number: GB-MYLANLABS-2019M1060237

PATIENT
  Age: 40 Year
  Sex: Female

DRUGS (2)
  1. LAMOTRIGINE. [Suspect]
     Active Substance: LAMOTRIGINE
     Indication: DRUG THERAPY
     Dosage: DOSAGE FORM: UNSPECIFIED
     Route: 065
     Dates: start: 201809
  2. STELARA [Suspect]
     Active Substance: USTEKINUMAB
     Indication: PSORIASIS
     Dosage: 45 MILLIGRAM, Q12 WEEKS
     Route: 058
     Dates: start: 2014

REACTIONS (3)
  - Influenza like illness [Recovering/Resolving]
  - Inappropriate schedule of product administration [Unknown]
  - Stevens-Johnson syndrome [Unknown]

NARRATIVE: CASE EVENT DATE: 201812
